FAERS Safety Report 7751893-1 (Version None)
Quarter: 2011Q3

REPORT INFORMATION
  Report Type: 
  Country: None (occurrence: None)
  Receive Date: 20110915
  Receipt Date: 20110902
  Transmission Date: 20111222
  Serious: Yes (Death, Life-Threatening, Hospitalization, Other)
  Sender: FDA-Public Use
  Company Number: JP-JNJFOC-20110900666

PATIENT
  Sex: Female

DRUGS (18)
  1. BANAN [Suspect]
     Indication: URINARY TRACT INFECTION
     Route: 048
     Dates: start: 20090425, end: 20090401
  2. VOLTAREN [Suspect]
     Route: 065
     Dates: start: 20090501, end: 20090501
  3. MAOTO [Concomitant]
     Route: 065
     Dates: start: 20090427
  4. TRANEXAMIC ACID [Concomitant]
     Route: 065
     Dates: start: 20090427
  5. BETAMETHASONE [Concomitant]
     Indication: PRODUCT USED FOR UNKNOWN INDICATION
     Route: 047
     Dates: start: 20090401, end: 20090509
  6. METILON [Suspect]
     Indication: ANTIPYRESIS
     Route: 030
     Dates: start: 20090501, end: 20090501
  7. VOLTAREN [Suspect]
     Route: 065
     Dates: start: 20090510, end: 20090510
  8. CARNACULIN [Concomitant]
     Indication: PRODUCT USED FOR UNKNOWN INDICATION
     Route: 048
     Dates: start: 20090401, end: 20090509
  9. ACETAMINOPHEN [Concomitant]
     Route: 048
     Dates: start: 20090502, end: 20090506
  10. ROCEPHIN [Suspect]
     Indication: PYELONEPHRITIS
     Route: 042
     Dates: start: 20090429, end: 20090510
  11. VOLTAREN [Suspect]
     Indication: ANTIPYRESIS
     Route: 065
     Dates: start: 20090507, end: 20090507
  12. BIOFERMIN [Concomitant]
     Route: 065
     Dates: start: 20090425
  13. LEVOFLOXACIN [Suspect]
     Indication: URINARY TRACT INFECTION
     Route: 048
     Dates: start: 20090427, end: 20090401
  14. VOLTAREN [Suspect]
     Route: 065
     Dates: start: 20090506, end: 20090506
  15. ACETAMINOPHEN [Concomitant]
     Route: 065
     Dates: start: 20090425
  16. POTASSIUM CHLORIDE [Concomitant]
     Route: 042
     Dates: start: 20090430, end: 20090511
  17. METILON [Suspect]
     Indication: PYELONEPHRITIS
     Route: 030
     Dates: start: 20090501, end: 20090501
  18. VOLTAREN [Suspect]
     Route: 065
     Dates: start: 20090503, end: 20090503

REACTIONS (6)
  - LIVER DISORDER [None]
  - DIARRHOEA HAEMORRHAGIC [None]
  - DRUG INEFFECTIVE [None]
  - MOUTH ULCERATION [None]
  - DEATH [None]
  - DERMATITIS ALLERGIC [None]
